FAERS Safety Report 13120378 (Version 1)
Quarter: 2017Q1

REPORT INFORMATION
  Report Type: Spontaneous
  Country: US (occurrence: US)
  Receive Date: 20170117
  Receipt Date: 20170117
  Transmission Date: 20170428
  Serious: No
  Sender: FDA-Public Use
  Company Number: US-LEO PHARMA-245427

PATIENT
  Age: 43 Year
  Sex: Male
  Weight: 72.5 kg

DRUGS (1)
  1. PICATO [Suspect]
     Active Substance: INGENOL MEBUTATE
     Indication: PRODUCT USED FOR UNKNOWN INDICATION
     Route: 061
     Dates: start: 20170106

REACTIONS (4)
  - Drug administered at inappropriate site [Unknown]
  - Application site exfoliation [Recovered/Resolved]
  - Application site erosion [Not Recovered/Not Resolved]
  - Application site vesicles [Recovered/Resolved]

NARRATIVE: CASE EVENT DATE: 20170107
